FAERS Safety Report 4792053-6 (Version None)
Quarter: 2005Q4

REPORT INFORMATION
  Report Type: 
  Country: None (occurrence: None)
  Receive Date: 20051007
  Receipt Date: 20050926
  Transmission Date: 20060501
  Serious: Yes (Hospitalization, Disabling, Other)
  Sender: FDA-Public Use
  Company Number: US-MERCK-0509USA03620

PATIENT
  Age: 71 Year
  Sex: Female

DRUGS (9)
  1. VIOXX [Suspect]
     Indication: PAIN MANAGEMENT
     Route: 048
     Dates: start: 20030107, end: 20040816
  2. CLARITIN [Concomitant]
     Route: 065
  3. FOSAMAX [Concomitant]
     Route: 048
  4. PROZAC [Concomitant]
     Route: 065
  5. COZAAR [Concomitant]
     Route: 048
  6. CARDURA [Concomitant]
     Route: 065
  7. LORAZEPAN [Concomitant]
     Route: 065
  8. HYZAAR [Concomitant]
     Route: 048
  9. PROAMATINE [Concomitant]
     Route: 065

REACTIONS (5)
  - CARDIAC DISORDER [None]
  - CARDIOMEGALY [None]
  - DYSPNOEA [None]
  - LOSS OF CONSCIOUSNESS [None]
  - RENAL DISORDER [None]
